FAERS Safety Report 11370675 (Version 2)
Quarter: 2015Q3

REPORT INFORMATION
  Report Type: Spontaneous
  Country: IT (occurrence: IT)
  Receive Date: 20150812
  Receipt Date: 20150820
  Transmission Date: 20151125
  Serious: Yes (Hospitalization)
  Sender: FDA-Public Use
  Company Number: IT-RECORDATI RARE DISEASES-IT-R13005-15-00124

PATIENT
  Age: 2 Year
  Sex: Male

DRUGS (2)
  1. IBUPROFEN. [Suspect]
     Active Substance: IBUPROFEN
     Route: 065
  2. IBUPROFEN. [Suspect]
     Active Substance: IBUPROFEN
     Indication: PYREXIA
     Dosage: TWO DOSES OF 10 MG/KG PER DOSE
     Route: 065

REACTIONS (2)
  - Off label use [Unknown]
  - Erosive oesophagitis [Recovered/Resolved]
